FAERS Safety Report 7107366-2 (Version None)
Quarter: 2010Q4

REPORT INFORMATION
  Report Type: 
  Country: None (occurrence: None)
  Receive Date: 20101111
  Receipt Date: 20101111
  Transmission Date: 20110411
  Serious: No
  Sender: FDA-Public Use
  Company Number: None

PATIENT
  Age: 17 Year
  Sex: Female
  Weight: 54.4316 kg

DRUGS (4)
  1. ABILIFY [Suspect]
     Indication: BIPOLAR DISORDER
     Dosage: 2 MG Q QM PO
     Route: 048
     Dates: start: 20100819, end: 20100902
  2. ABILIFY [Suspect]
     Indication: POST-TRAUMATIC STRESS DISORDER
     Dosage: 2 MG Q QM PO
     Route: 048
     Dates: start: 20100819, end: 20100902
  3. LEXAPRO [Suspect]
     Indication: BIPOLAR DISORDER
     Dosage: 10 MG Q AM PO
     Route: 048
     Dates: start: 20100817, end: 20100902
  4. LEXAPRO [Suspect]
     Indication: POST-TRAUMATIC STRESS DISORDER
     Dosage: 10 MG Q AM PO
     Route: 048
     Dates: start: 20100817, end: 20100902

REACTIONS (2)
  - DRUG ERUPTION [None]
  - RASH PRURITIC [None]
